FAERS Safety Report 21219626 (Version 1)
Quarter: 2022Q3

REPORT INFORMATION
  Report Type: Report from Study
  Country: IT (occurrence: IT)
  Receive Date: 20220817
  Receipt Date: 20220817
  Transmission Date: 20221027
  Serious: Yes (Other)
  Sender: FDA-Public Use
  Company Number: IT-UCBSA-2022046291

PATIENT
  Sex: Male
  Weight: 70 kg

DRUGS (8)
  1. BRIVIACT [Suspect]
     Active Substance: BRIVARACETAM
     Indication: Product used for unknown indication
     Dosage: UNK
     Dates: end: 20220722
  2. LACOSAMIDE [Concomitant]
     Active Substance: LACOSAMIDE
     Indication: Epilepsy
     Dosage: 100 MILLIGRAM, 2X/DAY (BID)
     Route: 048
     Dates: start: 20180531
  3. ASPIRIN [Concomitant]
     Active Substance: ASPIRIN
     Indication: Cerebrovascular accident
  4. SIMVASTATIN [Concomitant]
     Active Substance: SIMVASTATIN
     Indication: Hypercholesterolaemia
  5. FOLIC ACID [Concomitant]
     Active Substance: FOLIC ACID
     Indication: Hyperhomocysteinaemia
  6. THIAMINE [Concomitant]
     Active Substance: THIAMINE
     Indication: Hyperhomocysteinaemia
  7. AMLODIPINE [Concomitant]
     Active Substance: AMLODIPINE BESYLATE
     Indication: Hypertension
     Dosage: UNK
  8. RAMIPRIL [Concomitant]
     Active Substance: RAMIPRIL
     Indication: Hypertension
     Dosage: UNK

REACTIONS (1)
  - Seizure [Recovered/Resolved]

NARRATIVE: CASE EVENT DATE: 20220722
